FAERS Safety Report 20745007 (Version 2)
Quarter: 2022Q2

REPORT INFORMATION
  Report Type: Spontaneous
  Country: US (occurrence: US)
  Receive Date: 20220425
  Receipt Date: 20220510
  Transmission Date: 20220720
  Serious: No
  Sender: FDA-Public Use
  Company Number: US-BIOVITRUM-2022US05472

PATIENT
  Age: 0 Year
  Sex: Male

DRUGS (4)
  1. SYNAGIS [Suspect]
     Active Substance: PALIVIZUMAB
     Indication: Premature baby
     Route: 030
     Dates: start: 20210930
  2. SYNAGIS [Suspect]
     Active Substance: PALIVIZUMAB
     Route: 030
     Dates: start: 20211027
  3. IRON\VITAMINS [Concomitant]
     Active Substance: IRON\VITAMINS
     Dosage: ONE ML ORALLY ONCE A DAY
     Route: 048
  4. IRON\VITAMINS [Concomitant]
     Active Substance: IRON\VITAMINS

REACTIONS (6)
  - Illness [Unknown]
  - Vomiting [Unknown]
  - Upper respiratory tract infection [Recovered/Resolved]
  - Nasal congestion [Unknown]
  - Dermatitis atopic [Unknown]
  - Inappropriate schedule of product administration [Unknown]

NARRATIVE: CASE EVENT DATE: 20220317
